FAERS Safety Report 15757359 (Version 1)
Quarter: 2018Q4

REPORT INFORMATION
  Report Type: Spontaneous
  Country: US (occurrence: US)
  Receive Date: 20181224
  Receipt Date: 20181224
  Transmission Date: 20190205
  Serious: Yes (Hospitalization)
  Sender: FDA-Public Use
  Company Number: US-OTSUKA-2018_039641

PATIENT
  Age: 90 Year
  Sex: Female

DRUGS (2)
  1. SAMSCA [Suspect]
     Active Substance: TOLVAPTAN
     Indication: BLOOD OSMOLARITY DECREASED
     Dosage: 15 MG, QD
     Route: 048
  2. SAMSCA [Suspect]
     Active Substance: TOLVAPTAN
     Indication: HYPONATRAEMIA

REACTIONS (5)
  - Diarrhoea [Unknown]
  - Blood potassium decreased [Unknown]
  - Urinary tract infection [Unknown]
  - Pneumonia [Unknown]
  - Asthenia [Unknown]

NARRATIVE: CASE EVENT DATE: 201811
